FAERS Safety Report 6185317-5 (Version None)
Quarter: 2009Q2

REPORT INFORMATION
  Report Type: 
  Country: None (occurrence: None)
  Receive Date: 20090511
  Receipt Date: 20090505
  Transmission Date: 20091009
  Serious: Yes (Hospitalization)
  Sender: FDA-Public Use
  Company Number: CH-ROCHE-631447

PATIENT
  Age: 38 Year
  Sex: Female

DRUGS (4)
  1. FLUMAZENIL [Suspect]
     Indication: DRUG USE FOR UNKNOWN INDICATION
     Dosage: FORM: VIALS
     Route: 051
     Dates: start: 20090329, end: 20090329
  2. RIVOTRIL [Suspect]
     Indication: DRUG USE FOR UNKNOWN INDICATION
     Route: 048
     Dates: start: 20090329, end: 20090329
  3. CIPRALEX [Concomitant]
     Dosage: FORM: FILM COATED TABLETS
  4. RISPERDAL CONSTA [Concomitant]
     Route: 030

REACTIONS (3)
  - COMA [None]
  - CONVULSION [None]
  - DRUG ABUSE [None]
